FAERS Safety Report 18743736 (Version 1)
Quarter: 2021Q1

REPORT INFORMATION
  Report Type: Spontaneous
  Country: US (occurrence: US)
  Receive Date: 20210114
  Receipt Date: 20210114
  Transmission Date: 20210419
  Serious: No
  Sender: FDA-Public Use
  Company Number: US-NOVOPROD-771345

PATIENT
  Age: 80 Year
  Sex: Female

DRUGS (1)
  1. OZEMPIC [Suspect]
     Active Substance: SEMAGLUTIDE
     Indication: PRODUCT USED FOR UNKNOWN INDICATION
     Dosage: 0.25 MG, QW (SAMPLE PEN)
     Route: 058
     Dates: start: 20201123

REACTIONS (4)
  - Abdominal pain upper [Not Recovered/Not Resolved]
  - Dysphonia [Not Recovered/Not Resolved]
  - Aphonia [Not Recovered/Not Resolved]
  - Eye pain [Not Recovered/Not Resolved]

NARRATIVE: CASE EVENT DATE: 20201130
